FAERS Safety Report 9087763 (Version 2)
Quarter: 2013Q1

REPORT INFORMATION
  Report Type: Report from Study
  Country: US (occurrence: US)
  Receive Date: 20130218
  Receipt Date: 20130307
  Transmission Date: 20140127
  Serious: Yes (Hospitalization, Other)
  Sender: FDA-Public Use
  Company Number: US-ABBOTT-13P-163-1049503-00

PATIENT
  Age: 45 None
  Sex: Female

DRUGS (21)
  1. HUMIRA PEN [Suspect]
     Indication: RHEUMATOID ARTHRITIS
     Route: 058
     Dates: end: 201206
  2. HUMIRA PEN [Suspect]
     Route: 058
     Dates: start: 20130205
  3. OMEPRAZOLE [Concomitant]
     Indication: GASTROOESOPHAGEAL REFLUX DISEASE
  4. ARICEPT [Concomitant]
     Indication: AMNESIA
  5. LOSARTAN [Concomitant]
     Indication: HYPERTENSION
  6. SINGULAIR [Concomitant]
     Indication: HYPERSENSITIVITY
  7. CELEXA [Concomitant]
     Indication: DEPRESSION
  8. FOLBIC [Concomitant]
     Indication: PRODUCT USED FOR UNKNOWN INDICATION
  9. SENNA [Concomitant]
     Indication: CONSTIPATION
  10. WELLBUTRIN [Concomitant]
     Indication: DEPRESSION
  11. METFORMIN [Concomitant]
     Indication: TYPE 2 DIABETES MELLITUS
  12. NIACIN [Concomitant]
     Indication: BLOOD CHOLESTEROL INCREASED
  13. SIMVASTATIN [Concomitant]
     Indication: BLOOD CHOLESTEROL INCREASED
  14. DULCOLAX [Concomitant]
     Indication: CONSTIPATION
  15. OYSTER SHELL CALCIUM [Concomitant]
     Indication: BLOOD CALCIUM DECREASED
  16. AGGRENOX [Concomitant]
     Indication: CEREBROVASCULAR ACCIDENT PROPHYLAXIS
  17. BIOTIN [Concomitant]
     Indication: HAIR DISORDER
  18. VITAMIN D NOS [Concomitant]
     Indication: VITAMIN D DECREASED
  19. SUPER B COMPLEX [Concomitant]
     Indication: HAIR DISORDER
  20. REMISEMIN [Concomitant]
     Indication: HOT FLUSH
  21. PRE-NATAL VITAMIN [Concomitant]
     Indication: PRODUCT USED FOR UNKNOWN INDICATION

REACTIONS (4)
  - Dysgraphia [Recovering/Resolving]
  - Cerebrovascular accident [Recovered/Resolved with Sequelae]
  - Surgery [Unknown]
  - Pain [Recovering/Resolving]
